FAERS Safety Report 7975212-0 (Version None)
Quarter: 2011Q4

REPORT INFORMATION
  Report Type: 
  Country: None (occurrence: None)
  Receive Date: 20111213
  Receipt Date: 20110922
  Transmission Date: 20120403
  Serious: No
  Sender: FDA-Public Use
  Company Number: US-AMGEN-USASP2011049148

PATIENT
  Age: 51 Year
  Sex: Female

DRUGS (2)
  1. ENBREL [Suspect]
     Indication: RHEUMATOID ARTHRITIS
     Dosage: 50 MG, QWK
     Dates: start: 20110215, end: 20110801
  2. TREXALL [Concomitant]
     Dosage: 1 MG, QWK
     Dates: start: 20110101

REACTIONS (2)
  - HEPATIC ENZYME INCREASED [None]
  - DRUG INEFFECTIVE [None]
